FAERS Safety Report 11879104 (Version 4)
Quarter: 2016Q1

REPORT INFORMATION
  Report Type: Spontaneous
  Country: US (occurrence: US)
  Receive Date: 20151230
  Receipt Date: 20160329
  Transmission Date: 20160526
  Serious: Yes (Hospitalization, Other)
  Sender: FDA-Public Use
  Company Number: US-GLAXOSMITHKLINE-US2015GSK181045

PATIENT
  Sex: Female

DRUGS (3)
  1. SUMATRIPTAN. [Suspect]
     Active Substance: SUMATRIPTAN
     Indication: MIGRAINE
     Dosage: 6 MG, UNK
  2. SUMATRIPTAN. [Suspect]
     Active Substance: SUMATRIPTAN
     Indication: OCCIPITAL NEURALGIA
     Dosage: 6 MG, UNK
  3. SUMATRIPTAN. [Suspect]
     Active Substance: SUMATRIPTAN
     Dosage: 6 MG, UNK

REACTIONS (7)
  - Vomiting [Unknown]
  - Migraine [Unknown]
  - Dehydration [Unknown]
  - Incorrect dose administered [Not Recovered/Not Resolved]
  - Product quality issue [Unknown]
  - Hospitalisation [Unknown]
  - Off label use [Unknown]
